FAERS Safety Report 4620914-7 (Version None)
Quarter: 2005Q1

REPORT INFORMATION
  Report Type: 
  Country: None (occurrence: None)
  Receive Date: 20050325
  Receipt Date: 20050322
  Transmission Date: 20050727
  Serious: Yes (Other)
  Sender: FDA-Public Use
  Company Number: LTI2005A00075

PATIENT
  Sex: Male

DRUGS (1)
  1. ENANTONE LP 11.25 MG PREP INJ (LEUPROLIDE ACETATE) (11.25 MILLIGRAM, I [Suspect]
     Indication: PROSTATE CANCER
     Dosage: 11.25 MG (22.25 MG, 1 IN 3 M), SUBCUTANEOUS
     Route: 058
     Dates: start: 20040701

REACTIONS (1)
  - SKIN ULCER [None]
